FAERS Safety Report 8907267 (Version 1)
Quarter: 2012Q4

REPORT INFORMATION
  Report Type: 
  Country: US (occurrence: US)
  Receive Date: 20121113
  Receipt Date: 20121113
  Transmission Date: 20130627
  Serious: No
  Sender: FDA-Public Use
  Company Number: US-AMGEN-USASP2012010558

PATIENT
  Age: 46 Year
  Sex: Male

DRUGS (5)
  1. ENBREL [Suspect]
     Indication: PSORIASIS
     Dosage: 50 mg, 2 times/wk
     Route: 058
     Dates: start: 20101215
  2. CITALOPRAM [Concomitant]
     Dosage: 10 mg, UNK
  3. LORAZEPAM [Concomitant]
     Dosage: 0.5 mg, UNK
  4. VITAMIN D /00107901/ [Concomitant]
     Dosage: UNK
  5. OMEGA 3 FISH OIL [Concomitant]
     Dosage: UNK

REACTIONS (2)
  - Fatigue [Unknown]
  - Impaired work ability [Unknown]
